FAERS Safety Report 9645996 (Version 3)
Quarter: 2013Q4

REPORT INFORMATION
  Report Type: Spontaneous
  Country: SE (occurrence: SE)
  Receive Date: 20131025
  Receipt Date: 20131211
  Transmission Date: 20140711
  Serious: Yes (Other)
  Sender: FDA-Public Use
  Company Number: SE-GLAXOSMITHKLINE-B0935215A

PATIENT
  Age: 74 Year
  Sex: Female

DRUGS (7)
  1. FLUTIDE [Suspect]
     Indication: ASTHMA
     Route: 055
     Dates: start: 201306
  2. FLUTICASONE [Suspect]
     Indication: HYPERSENSITIVITY
     Route: 065
     Dates: start: 201306
  3. VENTILASTIN [Suspect]
     Indication: PRODUCT USED FOR UNKNOWN INDICATION
     Route: 065
     Dates: start: 201302
  4. CORTISONE INHALER [Suspect]
     Indication: PRODUCT USED FOR UNKNOWN INDICATION
     Route: 055
     Dates: start: 201301
  5. NOVOPULMON [Concomitant]
     Dates: start: 201302, end: 201306
  6. NASONEX [Concomitant]
     Dates: start: 201302, end: 201306
  7. INSULIN [Concomitant]

REACTIONS (5)
  - Glaucoma [Not Recovered/Not Resolved]
  - Vision blurred [Unknown]
  - Drug ineffective [Unknown]
  - Visual field defect [Unknown]
  - Visual acuity reduced [Unknown]
